FAERS Safety Report 9101910 (Version 1)
Quarter: 2013Q1

REPORT INFORMATION
  Report Type: Spontaneous
  Country: US (occurrence: US)
  Receive Date: 20130218
  Receipt Date: 20130218
  Transmission Date: 20140127
  Serious: Yes (Hospitalization, Other)
  Sender: FDA-Public Use
  Company Number: PHEH2013US002963

PATIENT
  Age: 72 Year
  Sex: Female

DRUGS (3)
  1. GLEEVEC [Suspect]
     Dosage: 400 MG, QD
     Route: 048
     Dates: start: 201207
  2. GLEEVEC [Suspect]
     Dosage: 400 MG, 3DAYS ON AND 1 DAY OFF
  3. GLEEVEC [Suspect]
     Dosage: 400 MG, QD
     Route: 048

REACTIONS (3)
  - Diabetes mellitus [Recovering/Resolving]
  - Full blood count abnormal [Recovering/Resolving]
  - Drug intolerance [Unknown]
